FAERS Safety Report 9766515 (Version 1)
Quarter: 2013Q4

REPORT INFORMATION
  Report Type: Spontaneous
  Country: US (occurrence: US)
  Receive Date: 20131217
  Receipt Date: 20131217
  Transmission Date: 20140711
  Serious: No
  Sender: FDA-Public Use
  Company Number: US-GLAXOSMITHKLINE-A1028908A

PATIENT
  Age: 70 Year
  Sex: Female

DRUGS (5)
  1. VOTRIENT [Suspect]
     Indication: RENAL CANCER
     Dosage: 100MG PER DAY
     Route: 048
     Dates: start: 20130314
  2. SIMVASTATIN [Concomitant]
  3. PLAVIX [Concomitant]
  4. PANTOPRAZOLE [Concomitant]
  5. LEVOTHYROXINE [Concomitant]

REACTIONS (6)
  - Fatigue [Not Recovered/Not Resolved]
  - Abdominal pain upper [Unknown]
  - Diarrhoea [Unknown]
  - Hair colour changes [Unknown]
  - Local swelling [Unknown]
  - Pain in extremity [Unknown]
